FAERS Safety Report 6217656-3 (Version None)
Quarter: 2009Q2

REPORT INFORMATION
  Report Type: 
  Country: None (occurrence: None)
  Receive Date: 20090608
  Receipt Date: 20090528
  Transmission Date: 20091009
  Serious: Yes (Hospitalization)
  Sender: FDA-Public Use
  Company Number: US-PFIZER INC-2009218234

PATIENT
  Age: 56 Year
  Sex: Female

DRUGS (17)
  1. AMLODIPINE BESILATE, ATORVASTATIN CALCIUM [Suspect]
     Dosage: UNK
  2. AMLODIPINE BESILATE [Suspect]
     Dosage: UNK
  3. NISOLDIPINE [Suspect]
     Dosage: UNK
  4. ISRADIPINE [Suspect]
     Dosage: UNK
  5. FUROSEMIDE [Concomitant]
     Dosage: UNK
  6. METOPROLOL [Concomitant]
     Dosage: UNK
  7. IRBESARTAN [Concomitant]
     Dosage: UNK
  8. CLONIDINE [Concomitant]
     Dosage: UNK
  9. ACETYLSALICYLIC ACID [Concomitant]
     Dosage: UNK
  10. FENOFIBRATE [Concomitant]
     Dosage: UNK
  11. PIOGLITAZONE [Concomitant]
     Dosage: UNK
  12. GLIMEPIRIDE [Concomitant]
     Dosage: UNK
  13. NPH INSULIN [Concomitant]
     Dosage: UNK
  14. MULTI-VITAMINS [Concomitant]
     Dosage: UNK
  15. BUPROPION [Concomitant]
     Dosage: UNK
  16. PROCRIT [Concomitant]
     Dosage: UNK
  17. FOLTX [Concomitant]
     Dosage: UNK

REACTIONS (1)
  - SMALL BOWEL ANGIOEDEMA [None]
